FAERS Safety Report 10890126 (Version 1)
Quarter: 2015Q1

REPORT INFORMATION
  Report Type: Spontaneous
  Country: GB (occurrence: GB)
  Receive Date: 20150305
  Receipt Date: 20150305
  Transmission Date: 20150721
  Serious: Yes (Other)
  Sender: FDA-Public Use
  Company Number: GB-009507513-1502GBR011925

PATIENT
  Age: 30 Year
  Sex: Female
  Weight: 67 kg

DRUGS (5)
  1. HYDROXYCHLOROQUINE SULFATE. [Concomitant]
     Active Substance: HYDROXYCHLOROQUINE SULFATE
     Indication: POLYARTHRITIS
     Dosage: 200 MG, QD
     Route: 048
     Dates: start: 201411
  2. NAPROXEN. [Concomitant]
     Active Substance: NAPROXEN
     Dosage: 500 MG, BID
     Route: 048
     Dates: start: 201411
  3. NEXPLANON [Suspect]
     Active Substance: ETONOGESTREL
     Indication: CONTRACEPTION
     Route: 059
     Dates: start: 20120322
  4. SYMBICORT [Concomitant]
     Active Substance: BUDESONIDE\FORMOTEROL FUMARATE DIHYDRATE
     Indication: ASTHMA
     Dosage: 1 DF, BID, STRENGTH 200/6 (UNITS UNSPECIFIED)
     Route: 055
  5. VENTOLIN [Concomitant]
     Active Substance: ALBUTEROL SULFATE

REACTIONS (4)
  - Dysmenorrhoea [Unknown]
  - Pregnancy with implant contraceptive [Unknown]
  - Abortion spontaneous [Unknown]
  - Vaginal haemorrhage [Unknown]
